FAERS Safety Report 10239107 (Version 1)
Quarter: 2014Q2

REPORT INFORMATION
  Report Type: Spontaneous
  Country: US (occurrence: None)
  Receive Date: 20140613
  Receipt Date: 20140613
  Transmission Date: 20141212
  Serious: Yes (Hospitalization, Disabling, Other)
  Sender: FDA-Public Use
  Company Number: None

PATIENT
  Age: 61 Year
  Sex: Male
  Weight: 113.4 kg

DRUGS (1)
  1. ANDRO-GEL 1.5% ANDRO-GEL [Suspect]
     Indication: BLOOD TESTOSTERONE DECREASED
     Dosage: SMEAR ON CHEST TWICE DAILY, TWICE DAILY, GIVEN INTO/UNDER THE SKIN
     Route: 061

REACTIONS (2)
  - Prostate cancer [None]
  - Erectile dysfunction [None]
